FAERS Safety Report 20049996 (Version 1)
Quarter: 2021Q4

REPORT INFORMATION
  Report Type: Spontaneous
  Country: JP (occurrence: JP)
  Receive Date: 20211109
  Receipt Date: 20211109
  Transmission Date: 20220303
  Serious: Yes (Other)
  Sender: FDA-Public Use
  Company Number: JP-PFIZER INC-202101484505

PATIENT
  Age: 78 Year

DRUGS (1)
  1. XELJANZ [Suspect]
     Active Substance: TOFACITINIB CITRATE
     Indication: Rheumatoid arthritis
     Route: 048

REACTIONS (3)
  - Chronic myeloid leukaemia [Unknown]
  - Lung neoplasm malignant [Unknown]
  - Pleural effusion [Unknown]

NARRATIVE: CASE EVENT DATE: 20211001
